FAERS Safety Report 13004778 (Version 2)
Quarter: 2016Q4

REPORT INFORMATION
  Report Type: Spontaneous
  Country: PT (occurrence: PT)
  Receive Date: 20161207
  Receipt Date: 20161213
  Transmission Date: 20170207
  Serious: Yes (Other)
  Sender: FDA-Public Use
  Company Number: PT-AMGEN-PRTNI2016171429

PATIENT
  Age: 49 Year
  Sex: Male

DRUGS (1)
  1. ENBREL [Suspect]
     Active Substance: ETANERCEPT
     Indication: SCLERODERMA
     Dosage: 50 MG, 2X/WEEK
     Route: 065

REACTIONS (2)
  - Respiratory tract infection [Unknown]
  - Product use issue [Unknown]
